FAERS Safety Report 25506560 (Version 1)
Quarter: 2025Q3

REPORT INFORMATION
  Report Type: Spontaneous
  Country: US (occurrence: US)
  Receive Date: 20250702
  Receipt Date: 20250702
  Transmission Date: 20251021
  Serious: No
  Sender: GENMAB
  Company Number: US-ABBVIE-6305615

PATIENT
  Age: 61 Year
  Sex: Male

DRUGS (3)
  1. EPCORITAMAB [Suspect]
     Active Substance: EPCORITAMAB
     Indication: Diffuse large B-cell lymphoma
     Route: 048
     Dates: start: 20230320
  2. EPCORITAMAB [Suspect]
     Active Substance: EPCORITAMAB
     Route: 048
     Dates: start: 20230327
  3. EPCORITAMAB [Suspect]
     Active Substance: EPCORITAMAB
     Route: 048
     Dates: start: 20230404

REACTIONS (3)
  - Cytokine release syndrome [Recovered/Resolved]
  - Cytokine release syndrome [Unknown]
  - Therapy non-responder [Unknown]

NARRATIVE: CASE EVENT DATE: 20230101
